FAERS Safety Report 6781698-X (Version None)
Quarter: 2010Q2

REPORT INFORMATION
  Report Type: 
  Country: None (occurrence: None)
  Receive Date: 20100617
  Receipt Date: 20100617
  Transmission Date: 20101027
  Serious: Yes (Congenital Anomaly)
  Sender: FDA-Public Use
  Company Number: None

PATIENT
  Age: 30 Year
  Sex: Female
  Weight: 58.9676 kg

DRUGS (2)
  1. ZOLOFT [Suspect]
     Indication: ANXIETY
     Dosage: 100 DAILY BUCCAL, ABOUT A YEAR
     Route: 002
  2. ZOLOFT [Suspect]
     Indication: DEPRESSION
     Dosage: 100 DAILY BUCCAL, ABOUT A YEAR
     Route: 002

REACTIONS (1)
  - DRUG EXPOSURE DURING PREGNANCY [None]
